FAERS Safety Report 4373079-3 (Version None)
Quarter: 2004Q2

REPORT INFORMATION
  Report Type: 
  Country: None (occurrence: None)
  Receive Date: 20040526
  Receipt Date: 20040510
  Transmission Date: 20050107
  Serious: Yes (Hospitalization)
  Sender: FDA-Public Use
  Company Number: DSA_24385_2004

PATIENT
  Age: 66 Year
  Sex: Female

DRUGS (7)
  1. ENALAPRIL MALEATE AND HYDROCHLOROTHIAZIDE [Suspect]
     Indication: HYPERTENSION
     Dosage: 1 TAB Q DAY PO
     Route: 048
     Dates: start: 20001013, end: 20030723
  2. TELMISARTAN [Concomitant]
  3. ACERBOSE [Concomitant]
  4. GLICLAZIDE [Concomitant]
  5. BROMAZEPAM [Concomitant]
  6. ALLOPURINOL [Concomitant]
  7. PANTOPRAZOLE [Concomitant]

REACTIONS (2)
  - DIARRHOEA [None]
  - HYPONATRAEMIA [None]
